FAERS Safety Report 11061053 (Version 2)
Quarter: 2015Q3

REPORT INFORMATION
  Report Type: Spontaneous
  Country: FR (occurrence: FR)
  Receive Date: 20150424
  Receipt Date: 20150709
  Transmission Date: 20151125
  Serious: Yes (Other)
  Sender: FDA-Public Use
  Company Number: FR-ABBVIE-15K-056-1377923-00

PATIENT
  Age: 57 Year
  Sex: Male
  Weight: 85 kg

DRUGS (1)
  1. HUMIRA [Suspect]
     Active Substance: ADALIMUMAB
     Indication: CROHN^S DISEASE
     Route: 065
     Dates: start: 20141218, end: 20150323

REACTIONS (9)
  - Memory impairment [Not Recovered/Not Resolved]
  - Suicidal behaviour [Not Recovered/Not Resolved]
  - Nervous system disorder [Unknown]
  - Abnormal behaviour [Not Recovered/Not Resolved]
  - Disorientation [Not Recovered/Not Resolved]
  - Haematuria [Not Recovered/Not Resolved]
  - Aggression [Unknown]
  - Demyelination [Unknown]
  - Aggression [Not Recovered/Not Resolved]

NARRATIVE: CASE EVENT DATE: 201501
